FAERS Safety Report 9670159 (Version 1)
Quarter: 2013Q4

REPORT INFORMATION
  Report Type: Spontaneous
  Country: GB (occurrence: GB)
  Receive Date: 20131105
  Receipt Date: 20131105
  Transmission Date: 20140711
  Serious: Yes (Hospitalization)
  Sender: FDA-Public Use
  Company Number: PHHY2013GB120786

PATIENT
  Age: 82 Year
  Sex: Female

DRUGS (8)
  1. VENLAFAXINE [Suspect]
     Indication: DEPRESSION
     Route: 048
     Dates: end: 20131013
  2. VENLAFAXINE [Suspect]
     Dosage: 150 MG, INCREASED FROM 150MG TO 225MG ONCE DAILY.
     Route: 048
  3. PREGABALIN [Suspect]
     Indication: DEPRESSION
     Dosage: 200 MG, QD 100MG IN THE MORNING AND 50MG TEATIME AND AT NIGHT.
     Route: 048
  4. AMLODIPINE [Concomitant]
  5. RAMIPRIL [Concomitant]
  6. ZOPICLONE [Concomitant]
  7. DIAZEPAM [Concomitant]
  8. ATORVASTATIN [Concomitant]

REACTIONS (8)
  - Hypophagia [Recovering/Resolving]
  - Poverty of speech [Unknown]
  - Parkinsonism [Unknown]
  - Mobility decreased [Recovering/Resolving]
  - Extrapyramidal disorder [Not Recovered/Not Resolved]
  - Muscle rigidity [Unknown]
  - Dyskinesia [Unknown]
  - Tremor [Unknown]
